FAERS Safety Report 5130306-2 (Version None)
Quarter: 2006Q4

REPORT INFORMATION
  Report Type: 
  Country: None (occurrence: None)
  Receive Date: 20061013
  Receipt Date: 20060925
  Transmission Date: 20070319
  Serious: Yes (Other)
  Sender: FDA-Public Use
  Company Number: US200609007137

PATIENT
  Age: 58 Year
  Sex: Female

DRUGS (2)
  1. CYMBALTA [Suspect]
     Dosage: 20 MG,
     Dates: start: 20060601, end: 20060601
  2. VALIUM /NET/ (DIAZEPAM) [Concomitant]

REACTIONS (2)
  - COMA [None]
  - HEADACHE [None]
